FAERS Safety Report 24908925 (Version 1)
Quarter: 2025Q1

REPORT INFORMATION
  Report Type: Spontaneous
  Country: US (occurrence: US)
  Receive Date: 20250131
  Receipt Date: 20250131
  Transmission Date: 20250408
  Serious: Yes (Other)
  Sender: AAVIS PHARMACEUTICALS
  Company Number: US-AVS-000034

PATIENT
  Age: 73 Year
  Sex: Female

DRUGS (2)
  1. HYDROXYCHLOROQUINE [Suspect]
     Active Substance: HYDROXYCHLOROQUINE
     Indication: Rheumatoid arthritis
     Route: 065
  2. HYDROXYCHLOROQUINE [Suspect]
     Active Substance: HYDROXYCHLOROQUINE
     Indication: Lichen planus
     Route: 065

REACTIONS (5)
  - Maculopathy [Unknown]
  - Cystoid macular oedema [Recovering/Resolving]
  - Product use in unapproved indication [Unknown]
  - Toxicity to various agents [Unknown]
  - Visual impairment [Unknown]
